FAERS Safety Report 25177675 (Version 1)
Quarter: 2025Q2

REPORT INFORMATION
  Report Type: Report from Study
  Country: CO (occurrence: CO)
  Receive Date: 20250409
  Receipt Date: 20250409
  Transmission Date: 20250716
  Serious: Yes (Hospitalization, Other)
  Sender: ALEXION PHARMACEUTICALS
  Company Number: CO-AstraZeneca-CH-00841347A

PATIENT
  Age: 77 Year
  Weight: 85 kg

DRUGS (1)
  1. OSIMERTINIB [Suspect]
     Active Substance: OSIMERTINIB
     Indication: Lung neoplasm malignant
     Dosage: 80 MILLIGRAM, QD

REACTIONS (6)
  - Mobility decreased [Unknown]
  - Peripheral artery thrombosis [Unknown]
  - Urinary tract infection [Recovered/Resolved with Sequelae]
  - Immune system disorder [Recovered/Resolved with Sequelae]
  - Bedridden [Recovered/Resolved with Sequelae]
  - Therapy cessation [Recovered/Resolved with Sequelae]
